FAERS Safety Report 9454148 (Version 1)
Quarter: 2013Q3

REPORT INFORMATION
  Report Type: Spontaneous
  Country: FR (occurrence: FR)
  Receive Date: 20130812
  Receipt Date: 20130812
  Transmission Date: 20140515
  Serious: Yes (Hospitalization)
  Sender: FDA-Public Use
  Company Number: FR-SANOFI-AVENTIS-2013SA079489

PATIENT
  Age: 59 Year
  Sex: Male

DRUGS (3)
  1. LOVENOX [Suspect]
     Indication: PRODUCT USED FOR UNKNOWN INDICATION
     Dosage: STRENGTH: 4000IU/04ML?IN VIAL DOSE:1 UNIT(S)
     Route: 065
     Dates: start: 20130727, end: 20130729
  2. HYDROCHLOROTHIAZIDE/OLMESARTAN MEDOXOMIL [Suspect]
     Indication: PRODUCT USED FOR UNKNOWN INDICATION
     Route: 065
  3. LEVOTHYROX [Concomitant]

REACTIONS (2)
  - Bronchospasm [Recovered/Resolved]
  - Eyelid oedema [Recovered/Resolved]
